FAERS Safety Report 16088999 (Version 2)
Quarter: 2019Q2

REPORT INFORMATION
  Report Type: Spontaneous
  Country: US (occurrence: US)
  Receive Date: 20190319
  Receipt Date: 20190530
  Transmission Date: 20190711
  Serious: No
  Sender: FDA-Public Use
  Company Number: US-PFIZER INC-2019109734

PATIENT
  Age: 88 Year
  Sex: Female

DRUGS (6)
  1. LYRICA [Suspect]
     Active Substance: PREGABALIN
     Indication: NEURALGIA
     Dosage: 75 MG, 1X/DAY (NIGHT)
     Route: 048
  2. CELEBREX [Suspect]
     Active Substance: CELECOXIB
     Indication: ARTHRITIS
     Dosage: 200 MG, 1X/DAY (MORNING)
     Route: 048
  3. CELEBREX [Suspect]
     Active Substance: CELECOXIB
     Indication: BACK DISORDER
  4. CELEBREX [Suspect]
     Active Substance: CELECOXIB
     Indication: SCIATICA
  5. CELEBREX [Suspect]
     Active Substance: CELECOXIB
     Indication: OSTEOARTHRITIS
  6. LYRICA [Suspect]
     Active Substance: PREGABALIN
     Indication: POLYNEUROPATHY

REACTIONS (1)
  - Hypotension [Unknown]
